FAERS Safety Report 20628330 (Version 1)
Quarter: 2022Q1

REPORT INFORMATION
  Report Type: Spontaneous
  Country: US (occurrence: US)
  Receive Date: 20220323
  Receipt Date: 20220323
  Transmission Date: 20220424
  Serious: Yes (Hospitalization)
  Sender: FDA-Public Use
  Company Number: US-PFIZER INC-202200402797

PATIENT
  Age: 63 Year
  Sex: Male
  Weight: 82.64 kg

DRUGS (3)
  1. INLYTA [Suspect]
     Active Substance: AXITINIB
     Indication: Malignant melanoma
     Dosage: 5 MG, 2X/DAY
     Route: 048
     Dates: start: 20220210
  2. ALLOPURINOL [Concomitant]
     Active Substance: ALLOPURINOL
     Dosage: 100 MG, CYCLIC (1/2 A TABLET EVERY OTHER DAY)
  3. KEYTRUDA [Concomitant]
     Active Substance: PEMBROLIZUMAB
     Indication: Malignant melanoma
     Dosage: 200 MG(ONETIME INFUSION ALSO ON SAME DATE AS INLYTA)
     Dates: start: 20220210, end: 20220210

REACTIONS (3)
  - Rhabdomyolysis [Unknown]
  - Blood creatinine increased [Unknown]
  - Off label use [Unknown]
